FAERS Safety Report 4001397 (Version 2)
Quarter: 2014Q1

REPORT INFORMATION
  Report Type: Spontaneous
  Country: US (occurrence: US)
  Receive Date: 20030902
  Receipt Date: 20140227
  Transmission Date: 20141002
  Serious: Yes (Hospitalization)
  Sender: FDA-Public Use
  Company Number: US-JNJFOC-20030804638

PATIENT
  Age: 55 Year
  Sex: Female

DRUGS (3)
  1. DURAGESIC [Suspect]
     Indication: CANCER PAIN
     Route: 062
     Dates: start: 20030812, end: 20030821
  2. DURAGESIC [Suspect]
     Indication: CANCER PAIN
     Route: 062
     Dates: start: 20030821
  3. DURAGESIC [Suspect]
     Indication: CANCER PAIN
     Route: 062
     Dates: start: 200307, end: 20030811

REACTIONS (4)
  - Dehydration [Recovered/Resolved]
  - Decreased appetite [Not Recovered/Not Resolved]
  - Drug ineffective [Not Recovered/Not Resolved]
  - Product quality issue [Unknown]
